FAERS Safety Report 5300695-4 (Version None)
Quarter: 2007Q2

REPORT INFORMATION
  Report Type: 
  Country: None (occurrence: None)
  Receive Date: 20070418
  Receipt Date: 20070410
  Transmission Date: 20071010
  Serious: Yes (Disabling, Other)
  Sender: FDA-Public Use
  Company Number: US-MERCK-0608USA01318

PATIENT
  Age: 49 Year
  Sex: Female

DRUGS (6)
  1. FOSAMAX [Suspect]
     Indication: OSTEOPOROSIS
     Route: 048
     Dates: start: 19960101
  2. ACTONEL [Suspect]
     Route: 065
     Dates: start: 20010101
  3. HYDROCORTISONE [Concomitant]
     Route: 065
     Dates: start: 19970101
  4. HORMONES (UNSPECIFIED) [Concomitant]
     Route: 065
     Dates: start: 19970101, end: 19980101
  5. [THERAPY UNSPECIFIED] [Concomitant]
     Route: 065
  6. MIACALCIN [Concomitant]
     Route: 065
     Dates: end: 19970101

REACTIONS (11)
  - ANXIETY [None]
  - DEPRESSION [None]
  - GASTRIC DISORDER [None]
  - JAW DISORDER [None]
  - LIPOPROTEIN (A) INCREASED [None]
  - MIGRAINE [None]
  - OSTEOMYELITIS [None]
  - OSTEONECROSIS [None]
  - PERIODONTITIS [None]
  - TEMPOROMANDIBULAR JOINT SYNDROME [None]
  - UTERINE LEIOMYOMA [None]
